FAERS Safety Report 8142609-8 (Version None)
Quarter: 2012Q1

REPORT INFORMATION
  Report Type: 
  Country: None (occurrence: None)
  Receive Date: 20120216
  Receipt Date: 20120201
  Transmission Date: 20120608
  Serious: Yes (Other)
  Sender: FDA-Public Use
  Company Number: BR-AMGEN-BRASP2012009939

PATIENT
  Age: 49 Year
  Sex: Female
  Weight: 82 kg

DRUGS (4)
  1. TYLEX                              /00020001/ [Concomitant]
     Indication: BACK PAIN
     Dosage: UNK
     Dates: end: 20120131
  2. ENBREL [Suspect]
     Dosage: UNK (SOLUTION FOR INJECTION IN PRE-FILLED PEN)
     Dates: start: 20120101
  3. TYLEX                              /00020001/ [Concomitant]
     Dosage: UNK
  4. ENBREL [Suspect]
     Indication: PSORIASIS
     Dosage: 50 MG, WEEKLY (POWDER AND SOLVENT FOR SOLUTION FOR INJECTION)
     Route: 058
     Dates: start: 20090424, end: 20111201

REACTIONS (3)
  - GLUCOSE TOLERANCE IMPAIRED [None]
  - INJECTION SITE ERYTHEMA [None]
  - INJECTION SITE PRURITUS [None]
